FAERS Safety Report 8923844 (Version 1)
Quarter: 2012Q4

REPORT INFORMATION
  Report Type: 
  Country: GB (occurrence: GB)
  Receive Date: 20121126
  Receipt Date: 20121126
  Transmission Date: 20130627
  Serious: Yes (Disabling)
  Sender: FDA-Public Use
  Company Number: GB-ROCHE-1158641

PATIENT
  Age: 45 Year
  Sex: Male
  Weight: 102 kg

DRUGS (2)
  1. COPEGUS [Suspect]
     Indication: PRODUCT USED FOR UNKNOWN INDICATION
     Route: 048
     Dates: start: 20110805, end: 20120705
  2. PEGASYS [Interacting]
     Indication: PRODUCT USED FOR UNKNOWN INDICATION
     Route: 058
     Dates: start: 20110805, end: 20120705

REACTIONS (4)
  - Drug interaction [Unknown]
  - Thirst [Unknown]
  - Type 1 diabetes mellitus [Not Recovered/Not Resolved]
  - Weight decreased [Unknown]
